FAERS Safety Report 10528994 (Version 1)
Quarter: 2014Q4

REPORT INFORMATION
  Report Type: Spontaneous
  Country: CN (occurrence: CN)
  Receive Date: 20141020
  Receipt Date: 20141020
  Transmission Date: 20150528
  Serious: Yes (Other)
  Sender: FDA-Public Use
  Company Number: CN-PFIZER INC-2014287951

PATIENT
  Age: 82 Year
  Sex: Female

DRUGS (5)
  1. MIKEBAO [Concomitant]
     Indication: VITAMIN SUPPLEMENTATION
     Dosage: 500 MG, 3X/DAY
     Route: 048
     Dates: start: 20140606, end: 20140613
  2. CELEBREX [Suspect]
     Active Substance: CELECOXIB
     Indication: PAIN
     Dosage: 200 MG, 2X/DAY
     Route: 048
     Dates: start: 20140606, end: 20140613
  3. CLEXANE [Concomitant]
     Active Substance: ENOXAPARIN SODIUM
     Indication: COAGULOPATHY
     Dosage: 4000 IU, 1X/DAY
     Route: 030
     Dates: start: 20140606, end: 20140613
  4. ALPROSTADIL. [Concomitant]
     Active Substance: ALPROSTADIL
     Indication: PROMOTION OF PERIPHERAL CIRCULATION
     Dosage: 10 UG, 1X/DAY
     Route: 041
     Dates: start: 20140606, end: 20140613
  5. HORSE CHESTNUT EXTRACT [Suspect]
     Active Substance: HORSE CHESTNUT
     Dosage: 0.3 G, 2X/DAY
     Route: 048
     Dates: start: 20140606, end: 20140613

REACTIONS (1)
  - Hepatocellular injury [Recovered/Resolved]

NARRATIVE: CASE EVENT DATE: 20140613
